FAERS Safety Report 4399564-6 (Version None)
Quarter: 2004Q3

REPORT INFORMATION
  Report Type: 
  Country: None (occurrence: None)
  Receive Date: 20040712
  Receipt Date: 20040624
  Transmission Date: 20050211
  Serious: Yes (Hospitalization)
  Sender: FDA-Public Use
  Company Number: F01200401577

PATIENT
  Age: 65 Year
  Sex: Female

DRUGS (3)
  1. OXALIPLATIN - SOLUTION - 100 MG/M2 [Suspect]
     Indication: ADENOCARCINOMA PANCREAS
     Dosage: 100 MG/M2 ON DAY 2, Q2W INTRAVENOUS NOS
     Route: 042
     Dates: start: 20031015, end: 20031015
  2. GEMZAR [Suspect]
     Dosage: 1000 MG/M2 ON DAY 1, Q2W INTRAVENOUS NOS
     Route: 042
     Dates: start: 20031113, end: 20031113
  3. LEXOMIL (BROMAZEPAM) [Concomitant]

REACTIONS (18)
  - ABDOMINAL PAIN UPPER [None]
  - ANAEMIA [None]
  - ASTHENIA [None]
  - CHILLS [None]
  - COLITIS ULCERATIVE [None]
  - DRUG TOLERANCE DECREASED [None]
  - FALL [None]
  - FEBRILE NEUTROPENIA [None]
  - GASTROENTERITIS RADIATION [None]
  - HALLUCINATION [None]
  - NEUROPATHY [None]
  - PERICARDIAL EFFUSION [None]
  - RADIATION INJURY [None]
  - RADIATION OESOPHAGITIS [None]
  - SOMNOLENCE [None]
  - THERAPY NON-RESPONDER [None]
  - TREATMENT NONCOMPLIANCE [None]
  - VOMITING [None]
